FAERS Safety Report 9850140 (Version 3)
Quarter: 2014Q1

REPORT INFORMATION
  Report Type: Spontaneous
  Country: JP (occurrence: JP)
  Receive Date: 20140128
  Receipt Date: 20140218
  Transmission Date: 20141002
  Serious: Yes (Hospitalization, Other)
  Sender: FDA-Public Use
  Company Number: JP-PFIZER INC-2014022707

PATIENT
  Age: 76 Year
  Sex: Female
  Weight: 32 kg

DRUGS (24)
  1. CAMPTO [Suspect]
     Indication: COLORECTAL CANCER
     Dosage: 217.4 MG/BODY (180 MG/M2), 1X/DAY
     Route: 041
     Dates: start: 20130226, end: 20130226
  2. CAMPTO [Suspect]
     Dosage: 217.4 MG/BODY (180 MG/M2), 1X/DAY
     Route: 041
     Dates: start: 20130312, end: 20130312
  3. CAMPTO [Suspect]
     Dosage: 217.4 MG/BODY (180 MG/M2), 1X/DAY
     Route: 041
     Dates: start: 20130402, end: 20130402
  4. CAMPTO [Suspect]
     Dosage: 217.4 MG/BODY (180 MG/M2), 1X/DAY
     Route: 041
     Dates: start: 20130423, end: 20130423
  5. LEVOLEUCOVORIN CALCIUM [Suspect]
     Indication: COLON CANCER
     Dosage: 241.6 MG/BODY (200 MG/M2), 1X/DAY
     Route: 041
     Dates: start: 20130226, end: 20130226
  6. LEVOLEUCOVORIN CALCIUM [Suspect]
     Dosage: 241.6 MG/BODY (200 MG/M2), 1X/DAY
     Route: 041
     Dates: start: 20130312, end: 20130312
  7. LEVOLEUCOVORIN CALCIUM [Suspect]
     Dosage: 241.6 MG/BODY (200 MG/M2), 1X/DAY
     Route: 041
     Dates: start: 20130402, end: 20130402
  8. LEVOLEUCOVORIN CALCIUM [Suspect]
     Dosage: 241.6 MG/BODY (200 MG/M2), 1X/DAY
     Route: 041
     Dates: start: 20130423, end: 20130423
  9. 5-FU [Suspect]
     Indication: COLON CANCER
     Dosage: 483.2 MG/BODY (400 MG/M2), 1X/DAY
     Route: 040
     Dates: start: 20130226, end: 20130226
  10. 5-FU [Suspect]
     Dosage: 2899.2 MG/BODY/D1-2 (2400 MG/M2/D1-2), 2X/DAY
     Route: 041
     Dates: start: 20130226, end: 20130226
  11. 5-FU [Suspect]
     Dosage: 483.2 MG/BODY (400 MG/M2), 1X/DAY
     Route: 040
     Dates: start: 20130312, end: 20130312
  12. 5-FU [Suspect]
     Dosage: 2899.2 MG/BODY/D1-2 (2400 MG/M2/D1-2)
     Route: 041
     Dates: start: 20130312, end: 20130312
  13. 5-FU [Suspect]
     Dosage: 483.2 MG/BODY (400 MG/M2), 1X/DAY
     Route: 040
     Dates: start: 20130402, end: 20130402
  14. 5-FU [Suspect]
     Dosage: 2899.2 MG/BODY/D1-2 (2400 MG/M2/D1-2)
     Route: 041
     Dates: start: 20130402, end: 20130402
  15. 5-FU [Suspect]
     Dosage: 386.6 MG, 1X/DAY
     Route: 040
     Dates: start: 20130423, end: 20130423
  16. 5-FU [Suspect]
     Dosage: 2416 MG, 2X/DAY
     Route: 041
     Dates: start: 20130423, end: 20130423
  17. AVE0005 [Suspect]
     Indication: COLON CANCER
     Dosage: 4 MG/KG, 1X/DAY
     Route: 031
     Dates: start: 20130226, end: 20130226
  18. AVE0005 [Suspect]
     Dosage: 4 MG/KG, 1X/DAY
     Route: 031
     Dates: start: 20130312, end: 20130312
  19. AVE0005 [Suspect]
     Dosage: 4 MG/KG, 1X/DAY
     Route: 031
     Dates: start: 20130402, end: 20130402
  20. AVE0005 [Suspect]
     Dosage: 4 MG/KG, 1X/DAY
     Route: 031
     Dates: start: 20130423, end: 20130423
  21. HIRUDOID [Concomitant]
     Dosage: UNK
     Dates: start: 20120705
  22. OLMETEC [Concomitant]
     Dosage: UNK
     Dates: start: 20130219
  23. AZUNOL GARGLE LIQUID [Concomitant]
     Dosage: UNK
     Dates: start: 20130409
  24. TAKEPRON [Concomitant]
     Dosage: UNK
     Dates: start: 20130416

REACTIONS (5)
  - Herpes zoster [Recovered/Resolved]
  - Neutropenia [Recovered/Resolved]
  - Leukopenia [Recovered/Resolved]
  - Febrile neutropenia [Recovered/Resolved]
  - Stomatitis [Unknown]
